FAERS Safety Report 5252601-9 (Version None)
Quarter: 2007Q1

REPORT INFORMATION
  Report Type: 
  Country: None (occurrence: None)
  Receive Date: 20070227
  Receipt Date: 20070213
  Transmission Date: 20070707
  Serious: Yes (Life-Threatening, Hospitalization)
  Sender: FDA-Public Use
  Company Number: GXKR2007GB01688

PATIENT
  Age: 46 Year
  Sex: Male

DRUGS (2)
  1. METFORMIN (NGX)(METFORMIN) UNKNOWN [Suspect]
  2. RAMIPRIL [Suspect]

REACTIONS (6)
  - CARDIO-RESPIRATORY ARREST [None]
  - COMPARTMENT SYNDROME [None]
  - CONTINUOUS HAEMODIAFILTRATION [None]
  - LACTIC ACIDOSIS [None]
  - OVERDOSE [None]
  - RHABDOMYOLYSIS [None]
